FAERS Safety Report 8992226 (Version 1)
Quarter: 2012Q4

REPORT INFORMATION
  Report Type: 
  Country: US (occurrence: US)
  Receive Date: 20121231
  Receipt Date: 20121231
  Transmission Date: 20130627
  Serious: No
  Sender: FDA-Public Use
  Company Number: US-009507513-1212USA009899

PATIENT
  Sex: Male

DRUGS (5)
  1. PEGINTRON [Suspect]
     Indication: HEPATITIS C
     Dosage: UNK
     Route: 058
  2. CLARITIN [Concomitant]
  3. DEXEDRINE [Concomitant]
  4. PRILOSEC [Concomitant]
  5. ZOLOFT [Concomitant]

REACTIONS (6)
  - Restless legs syndrome [Not Recovered/Not Resolved]
  - Product quality issue [Unknown]
  - Chills [Not Recovered/Not Resolved]
  - Pain in extremity [Not Recovered/Not Resolved]
  - Rash [Not Recovered/Not Resolved]
  - Injection site hypersensitivity [Not Recovered/Not Resolved]
